FAERS Safety Report 9746510 (Version 1)
Quarter: 2013Q4

REPORT INFORMATION
  Report Type: Spontaneous
  Country: US (occurrence: None)
  Receive Date: 20131205
  Receipt Date: 20131205
  Transmission Date: 20140711
  Serious: Yes (Hospitalization, Other)
  Sender: FDA-Public Use
  Company Number: DAV-AE-MTX-13-47

PATIENT
  Age: 6 Year
  Sex: Female

DRUGS (5)
  1. METHOTREXATE [Suspect]
     Indication: B PRECURSOR TYPE ACUTE LEUKAEMIA
     Route: 037
  2. PREDNISONE [Concomitant]
  3. VINCRISTINE [Concomitant]
  4. 49-0-TETRAHYDROPYRANYLADRIAMYCIN [Concomitant]
  5. L-ASPARAGINASE [Concomitant]

REACTIONS (6)
  - Temporal lobe epilepsy [None]
  - Hippocampal sclerosis [None]
  - Grand mal convulsion [None]
  - Nausea [None]
  - Headache [None]
  - Loss of consciousness [None]
